FAERS Safety Report 7744155-X (Version None)
Quarter: 2011Q3

REPORT INFORMATION
  Report Type: 
  Country: None (occurrence: None)
  Receive Date: 20110912
  Receipt Date: 20110907
  Transmission Date: 20111222
  Serious: No
  Sender: FDA-Public Use
  Company Number: US-PFIZER INC-2011038059

PATIENT
  Sex: Female
  Weight: 58.957 kg

DRUGS (3)
  1. ADVIL LIQUI-GELS [Suspect]
     Indication: HEADACHE
     Dosage: 400 MG, 3X/DAY
     Route: 048
     Dates: start: 20110101
  2. ADVIL LIQUI-GELS [Suspect]
     Indication: BACK PAIN
     Dosage: 200 MG, UNK
     Route: 048
  3. ADVIL LIQUI-GELS [Suspect]
     Indication: MYALGIA

REACTIONS (1)
  - DRUG INEFFECTIVE [None]
